FAERS Safety Report 8533404-6 (Version None)
Quarter: 2012Q3

REPORT INFORMATION
  Report Type: 
  Country: None (occurrence: None)
  Receive Date: 20120724
  Receipt Date: 20120712
  Transmission Date: 20120928
  Serious: Yes (Other)
  Sender: FDA-Public Use
  Company Number: US-009507513-2012SP024294

PATIENT

DRUGS (5)
  1. TOPAMAX [Concomitant]
     Dosage: UNK UNK, HS
  2. ESKALITH [Concomitant]
     Dosage: UNK, BID
  3. SAPHRIS [Suspect]
     Indication: HALLUCINATION
     Dosage: 5 MG, UNK
     Route: 060
     Dates: start: 20111108
  4. ESKALITH [Concomitant]
     Dosage: 675 MG, UNK
  5. SAPHRIS [Suspect]
     Indication: PSYCHOTIC DISORDER

REACTIONS (2)
  - UNDERDOSE [None]
  - PULMONARY HYPERTENSION [None]
